FAERS Safety Report 6949688-1 (Version None)
Quarter: 2010Q3

REPORT INFORMATION
  Report Type: 
  Country: None (occurrence: None)
  Receive Date: 20100828
  Receipt Date: 20100106
  Transmission Date: 20110219
  Serious: No
  Sender: FDA-Public Use
  Company Number: US-ABBOTT-10P-163-0618522-00

PATIENT
  Sex: Male
  Weight: 152.09 kg

DRUGS (17)
  1. NIASPAN [Suspect]
     Indication: BLOOD CHOLESTEROL INCREASED
     Dates: start: 20040101
  2. ISOSORBIDE [Concomitant]
     Indication: HYPERTENSION
  3. POTASSIUM [Concomitant]
     Indication: ELECTROLYTE SUBSTITUTION THERAPY
  4. FUROSEMIDE [Concomitant]
     Indication: DIURETIC THERAPY
  5. TRICOR [Concomitant]
     Indication: BLOOD CHOLESTEROL INCREASED
  6. DOXAZOSIN MESYLATE [Concomitant]
     Indication: URINARY INCONTINENCE
  7. LIPITOR [Concomitant]
     Indication: BLOOD CHOLESTEROL INCREASED
  8. DIOVAN HCT [Concomitant]
     Indication: HYPERTENSION
  9. SYNTHROID [Concomitant]
     Indication: HYPOTHYROIDISM
  10. ACTOPLUS MET [Concomitant]
     Indication: DIABETES MELLITUS
  11. CARDURA [Concomitant]
     Indication: HYPERTENSION
  12. PREVACID [Concomitant]
     Indication: GASTROOESOPHAGEAL REFLUX DISEASE
  13. GABAPENTIN [Concomitant]
     Indication: NEUROPATHY PERIPHERAL
  14. GLYPIZIDE [Concomitant]
     Indication: DIABETES MELLITUS
  15. ASTELIN [Concomitant]
     Indication: HYPERSENSITIVITY
  16. SYMBICORT [Concomitant]
     Indication: ASTHMA
  17. METHYLFOLATE [Concomitant]
     Indication: MUSCLE SPASMS

REACTIONS (3)
  - FLUSHING [None]
  - PAIN OF SKIN [None]
  - SKIN BURNING SENSATION [None]
